FAERS Safety Report 5717662-9 (Version None)
Quarter: 2008Q2

REPORT INFORMATION
  Report Type: 
  Country: None (occurrence: None)
  Receive Date: 20080425
  Receipt Date: 20080417
  Transmission Date: 20081010
  Serious: Yes (Other)
  Sender: FDA-Public Use
  Company Number: US-TEVA-170316USA

PATIENT
  Sex: Male

DRUGS (1)
  1. AZILECT [Suspect]
     Indication: PARKINSON'S DISEASE
     Dosage: TAKEN FOR 2-4 WEEKS
     Route: 048

REACTIONS (1)
  - DERMATITIS BULLOUS [None]
